FAERS Safety Report 8842320 (Version 1)
Quarter: 2012Q4

REPORT INFORMATION
  Report Type: 
  Country: US (occurrence: US)
  Receive Date: 20121016
  Receipt Date: 20121016
  Transmission Date: 20130627
  Serious: Yes (Death, Other)
  Sender: FDA-Public Use
  Company Number: US-BAYER-2012-106761

PATIENT
  Age: 74 Year
  Sex: Male

DRUGS (2)
  1. BETASERON [Suspect]
     Indication: SECONDARY PROGRESSIVE MULTIPLE SCLEROSIS
     Dosage: UNK
     Route: 058
     Dates: start: 20030323, end: 20041201
  2. BETASERON [Suspect]
     Indication: SECONDARY PROGRESSIVE MULTIPLE SCLEROSIS
     Dosage: 8 miu, UNK
     Route: 058
     Dates: start: 20050818, end: 20120905

REACTIONS (3)
  - Death [Fatal]
  - Lung infection [Fatal]
  - Aspiration [None]
